FAERS Safety Report 13241781 (Version 1)
Quarter: 2017Q1

REPORT INFORMATION
  Report Type: Spontaneous
  Country: US (occurrence: US)
  Receive Date: 20170217
  Receipt Date: 20170217
  Transmission Date: 20170428
  Serious: No
  Sender: FDA-Public Use
  Company Number: US-PFIZER INC-2017064721

PATIENT
  Age: 72 Year
  Sex: Male
  Weight: 82.55 kg

DRUGS (2)
  1. GABAPENTIN. [Suspect]
     Active Substance: GABAPENTIN
     Indication: NEURALGIA
     Dosage: 400 MG, DAILY (1 CAPSULE IN THE EVENING)
     Route: 048
     Dates: start: 201508
  2. GABAPENTIN. [Suspect]
     Active Substance: GABAPENTIN
     Dosage: 400 MG, 3X/DAY (3 CAPSULES A DAY)

REACTIONS (1)
  - Drug ineffective for unapproved indication [Unknown]
